FAERS Safety Report 8160583-5 (Version None)
Quarter: 2012Q1

REPORT INFORMATION
  Report Type: 
  Country: None (occurrence: None)
  Receive Date: 20120223
  Receipt Date: 20120215
  Transmission Date: 20120608
  Serious: Yes (Other)
  Sender: FDA-Public Use
  Company Number: US-ALLERGAN-1202211US

PATIENT
  Sex: Female

DRUGS (2)
  1. COMBIGAN [Suspect]
     Indication: ABNORMAL SENSATION IN EYE
     Dosage: 2 GTT, BID
     Route: 047
     Dates: start: 20120214
  2. TRAVATAN [Suspect]
     Indication: ABNORMAL SENSATION IN EYE
     Dosage: 2 GTT, UNK
     Route: 047

REACTIONS (1)
  - VISUAL FIELD DEFECT [None]
